FAERS Safety Report 17533191 (Version 3)
Quarter: 2020Q2

REPORT INFORMATION
  Report Type: Spontaneous
  Country: GR (occurrence: GR)
  Receive Date: 20200312
  Receipt Date: 20200429
  Transmission Date: 20200713
  Serious: Yes (Other)
  Sender: FDA-Public Use
  Company Number: GR-ADHERA THERAPEUTICS, INC.-2020ADHERA000623

PATIENT

DRUGS (12)
  1. DAFLON                             /02311201/ [Suspect]
     Active Substance: DIOSMIN\HESPERIDIN
     Indication: PERIPHERAL VENOUS DISEASE
     Dosage: 500 MG, BID
     Route: 048
     Dates: start: 201812, end: 20200316
  2. BISOPROLOL FUMARATE. [Concomitant]
     Active Substance: BISOPROLOL FUMARATE
     Indication: TACHYCARDIA
     Dosage: 2.5 MG, QD
     Route: 065
     Dates: start: 2016
  3. AMLODIPINE [Concomitant]
     Active Substance: AMLODIPINE BESYLATE
     Indication: HYPERTENSION
     Dosage: 5 MG, QD
     Route: 065
     Dates: start: 20200317
  4. LYRICA [Concomitant]
     Active Substance: PREGABALIN
     Indication: DEPRESSION
     Dosage: 50 MG, QD
     Route: 065
     Dates: start: 2014
  5. LEXOTANIL [Concomitant]
     Active Substance: BROMAZEPAM
     Indication: ANXIETY
     Dosage: 3 MG, QD
     Route: 065
     Dates: start: 2014
  6. FUSIDIC ACID [Concomitant]
     Active Substance: FUSIDIC ACID
     Indication: ECZEMA
  7. AMLOPEN [Concomitant]
     Indication: HYPERTENSION
     Dosage: UNK UNK, QD
     Dates: start: 20200227, end: 20200316
  8. FUSIDIC ACID [Concomitant]
     Active Substance: FUSIDIC ACID
     Indication: URTICARIA
     Dosage: 2 %
     Dates: start: 202002
  9. COVERSYL                           /00790703/ [Suspect]
     Active Substance: PERINDOPRIL
     Indication: HYPERTENSION
     Dosage: 5 MG, QD
     Route: 048
     Dates: start: 201909, end: 20200220
  10. COVERAM [Suspect]
     Active Substance: AMLODIPINE\PERINDOPRIL
     Indication: HYPERTENSION
     Dosage: 5 MG, QD
     Route: 048
     Dates: start: 20200221, end: 20200227
  11. DAFLON                             /02311201/ [Suspect]
     Active Substance: DIOSMIN\HESPERIDIN
     Dosage: 500 MG, QD OR BID
     Route: 048
     Dates: start: 20200316, end: 202004
  12. MOXONIDINE [Concomitant]
     Active Substance: MOXONIDINE
     Indication: HYPERTENSION
     Dosage: 0.04 MG, QD
     Route: 065
     Dates: start: 20200317

REACTIONS (11)
  - Renal cancer [Recovered/Resolved]
  - Blood pressure increased [Recovered/Resolved]
  - Azotaemia [Recovered/Resolved]
  - Hypercreatinaemia [Recovered/Resolved]
  - Swelling of eyelid [Recovered/Resolved]
  - Peripheral swelling [Recovered/Resolved]
  - Hyperuricaemia [Recovered/Resolved]
  - Eye swelling [Recovered/Resolved]
  - Urticaria [Recovered/Resolved]
  - Eczema [Recovered/Resolved]
  - Swelling face [Recovered/Resolved]

NARRATIVE: CASE EVENT DATE: 2019
